FAERS Safety Report 6401895-2 (Version None)
Quarter: 2009Q4

REPORT INFORMATION
  Report Type: 
  Country: None (occurrence: None)
  Receive Date: 20091013
  Receipt Date: 20091013
  Transmission Date: 20100525
  Serious: Yes (Hospitalization)
  Sender: FDA-Public Use
  Company Number: None

PATIENT
  Sex: Male
  Weight: 12.2471 kg

DRUGS (1)
  1. TAMIFLU [Suspect]
     Indication: INFLUENZA
     Dosage: 30 MG 2X A DAY FOR 5 DAY PO
     Route: 048
     Dates: start: 20091006, end: 20091009

REACTIONS (3)
  - DIZZINESS [None]
  - EYE DISORDER [None]
  - HALLUCINATION [None]
